FAERS Safety Report 21357106 (Version 1)
Quarter: 2022Q3

REPORT INFORMATION
  Report Type: Report from Study
  Country: US (occurrence: US)
  Receive Date: 20220921
  Receipt Date: 20220921
  Transmission Date: 20221027
  Serious: Yes (Other)
  Sender: FDA-Public Use
  Company Number: US-BRISTOL-MYERS SQUIBB COMPANY-2022-039522

PATIENT
  Age: 73 Year
  Sex: Female
  Weight: 41.69 kg

DRUGS (8)
  1. POMALYST [Suspect]
     Active Substance: POMALIDOMIDE
     Indication: Chronic kidney disease
     Dosage: EXPIRY DATE: 31-JAN-2026
     Route: 048
     Dates: start: 20180122
  2. POMALYST [Suspect]
     Active Substance: POMALIDOMIDE
     Indication: Plasma cell myeloma
  3. POMALYST [Suspect]
     Active Substance: POMALIDOMIDE
     Indication: Neoplasm malignant
  4. POMALYST [Suspect]
     Active Substance: POMALIDOMIDE
     Indication: Neutropenia
  5. POMALYST [Suspect]
     Active Substance: POMALIDOMIDE
     Indication: Cytogenetic abnormality
  6. POMALYST [Suspect]
     Active Substance: POMALIDOMIDE
     Indication: Agranulocytosis
  7. REVLIMID [Concomitant]
     Active Substance: LENALIDOMIDE
     Route: 065
  8. ARANESP [Concomitant]
     Active Substance: DARBEPOETIN ALFA
     Route: 065

REACTIONS (5)
  - Skin cancer [Unknown]
  - Rash [Recovered/Resolved]
  - Sciatica [Unknown]
  - Lung neoplasm malignant [Unknown]
  - Memory impairment [Unknown]
